FAERS Safety Report 8175929-1 (Version None)
Quarter: 2012Q1

REPORT INFORMATION
  Report Type: 
  Country: None (occurrence: None)
  Receive Date: 20120301
  Receipt Date: 20120227
  Transmission Date: 20120608
  Serious: No
  Sender: FDA-Public Use
  Company Number: US-PFIZER INC-2012026760

PATIENT
  Sex: Female
  Weight: 72.562 kg

DRUGS (3)
  1. REVATIO [Suspect]
     Dosage: 20 MG, 2X/WEEK
     Dates: end: 20120101
  2. REVATIO [Suspect]
     Dosage: UNK
  3. REVATIO [Suspect]
     Indication: PULMONARY HYPERTENSION
     Dosage: 20 MG, 3X/DAY
     Dates: start: 20120101

REACTIONS (1)
  - RASH [None]
